FAERS Safety Report 9331001 (Version 1)
Quarter: 2013Q2

REPORT INFORMATION
  Report Type: Report from Study
  Country: BE (occurrence: BE)
  Receive Date: 20130605
  Receipt Date: 20130605
  Transmission Date: 20140414
  Serious: Yes (Other)
  Sender: FDA-Public Use
  Company Number: BE-B.I. PHARMACEUTICALS,INC./RIDGEFIELD-2012-BL-00382BL

PATIENT
  Age: 72 Year
  Sex: Male

DRUGS (10)
  1. PRADAXA [Suspect]
     Indication: ATRIAL FIBRILLATION
     Dosage: 300 MG
  2. NOBITEN [Concomitant]
     Dosage: 2.5 MG
  3. BELSAR PLUS [Concomitant]
     Dosage: 40/12.5MG
  4. CORDARONE [Concomitant]
     Dosage: 100 MG
  5. CRESTOR [Concomitant]
     Dosage: 10 MG
  6. TAMSULOSINE [Concomitant]
  7. FERROGRAD [Concomitant]
  8. PREVALON [Concomitant]
  9. CASODEX [Concomitant]
     Dosage: 150 MG
  10. VESICARE [Concomitant]
     Dosage: 2.5 MG

REACTIONS (2)
  - Deep vein thrombosis [Unknown]
  - Local swelling [Unknown]
